FAERS Safety Report 19468576 (Version 6)
Quarter: 2024Q1

REPORT INFORMATION
  Report Type: Other
  Country: JP (occurrence: None)
  Receive Date: 20210628
  Receipt Date: 20240131
  Transmission Date: 20240410
  Serious: Yes (Other)
  Sender: FDA-Public Use
  Company Number: JP-ROCHE-2852622

PATIENT

DRUGS (2)
  1. ATEZOLIZUMAB [Suspect]
     Active Substance: ATEZOLIZUMAB
     Indication: Hepatocellular carcinoma
     Route: 041
  2. BEVACIZUMAB [Suspect]
     Active Substance: BEVACIZUMAB
     Indication: Hepatocellular carcinoma
     Dosage: 15 MG/KG
     Route: 042

REACTIONS (24)
  - Decreased appetite [Unknown]
  - Thyroid disorder [Unknown]
  - Protein urine present [Unknown]
  - Fatigue [Unknown]
  - Hypertension [Unknown]
  - Transaminases increased [Unknown]
  - Pyrexia [Unknown]
  - Oedema [Unknown]
  - Ascites [Unknown]
  - Rash [Unknown]
  - Diarrhoea [Unknown]
  - Colitis [Unknown]
  - Interstitial lung disease [Unknown]
  - Epistaxis [Unknown]
  - Pancreatitis [Unknown]
  - Cardiac failure acute [Unknown]
  - Anaemia [Unknown]
  - Liver carcinoma ruptured [Unknown]
  - Oesophageal varices haemorrhage [Unknown]
  - Immune-mediated hepatic disorder [Unknown]
  - Endocrine disorder [Unknown]
  - Proteinuria [Unknown]
  - Hepatic function abnormal [Unknown]
  - Platelet count decreased [Unknown]
